FAERS Safety Report 8950918 (Version 1)
Quarter: 2012Q4

REPORT INFORMATION
  Report Type: Spontaneous
  Country: JP (occurrence: None)
  Receive Date: 20121128
  Receipt Date: 20121128
  Transmission Date: 20130627
  Serious: Yes (Death)
  Sender: FDA-Public Use
  Company Number: TCI2012A06769

PATIENT
  Age: 72 Year
  Sex: Male

DRUGS (4)
  1. ROZEREM [Suspect]
     Dosage: 8mg (8 mg, 1 in 1 d) per oral
     Route: 048
     Dates: start: 20120314, end: 20120328
  2. OMEPRAL (OMEPRAZOLE) [Concomitant]
  3. LOXONIN (LOXOPROPEN SODIUM) [Concomitant]
  4. TS 1 (OTERACIL POTASSIUM, TEGAFUR, GIMERACIL) [Concomitant]

REACTIONS (2)
  - Condition aggravated [None]
  - Lung neoplasm malignant [None]
